FAERS Safety Report 18704463 (Version 1)
Quarter: 2021Q1

REPORT INFORMATION
  Report Type: Other
  Country: US (occurrence: US)
  Receive Date: 20210105
  Receipt Date: 20210105
  Transmission Date: 20210419
  Serious: Yes (Hospitalization)
  Sender: FDA-Public Use
  Company Number: US-B.BRAUN MEDICAL INC.-2103973

PATIENT
  Age: 62 Year
  Sex: Male

DRUGS (2)
  1. VANCOMYCIN HYDROCHLORIDE. [Concomitant]
     Active Substance: VANCOMYCIN HYDROCHLORIDE
     Route: 042
  2. CEFEPIME HYDROCHLORIDE AND DEXTROSE [Suspect]
     Active Substance: CEFEPIME HYDROCHLORIDE
     Indication: ANTIBIOTIC THERAPY
     Route: 042

REACTIONS (2)
  - Tubulointerstitial nephritis [None]
  - Drug reaction with eosinophilia and systemic symptoms [None]
